FAERS Safety Report 10670046 (Version 1)
Quarter: 2014Q4

REPORT INFORMATION
  Report Type: Spontaneous
  Country: CA (occurrence: CA)
  Receive Date: 20141223
  Receipt Date: 20141223
  Transmission Date: 20150529
  Serious: Yes (Hospitalization, Other)
  Sender: FDA-Public Use
  Company Number: CA-ROCHE-1511391

PATIENT
  Age: 10 Year
  Sex: Female

DRUGS (4)
  1. XOLAIR [Suspect]
     Active Substance: OMALIZUMAB
     Indication: ASTHMA
     Route: 058
     Dates: start: 20121019
  2. XOLAIR [Suspect]
     Active Substance: OMALIZUMAB
     Route: 058
  3. FLOVENT [Concomitant]
     Active Substance: FLUTICASONE PROPIONATE
  4. SINGULAIR [Concomitant]
     Active Substance: MONTELUKAST SODIUM

REACTIONS (12)
  - Asthma [Unknown]
  - Erythema [Unknown]
  - Pseudomonas infection [Unknown]
  - Cough [Unknown]
  - Migraine [Unknown]
  - Chapped lips [Unknown]
  - Bronchopulmonary aspergillosis allergic [Unknown]
  - Blood immunoglobulin E increased [Unknown]
  - Discomfort [Unknown]
  - Lip discolouration [Unknown]
  - Pulmonary function test decreased [Unknown]
  - Drug ineffective [Unknown]

NARRATIVE: CASE EVENT DATE: 201306
